FAERS Safety Report 11747667 (Version 2)
Quarter: 2015Q4

REPORT INFORMATION
  Report Type: Spontaneous
  Country: US (occurrence: None)
  Receive Date: 20151117
  Receipt Date: 20151123
  Transmission Date: 20160304
  Serious: No
  Sender: FDA-Public Use
  Company Number: US-MDT-ADR-2015-02170

PATIENT
  Age: 15 Year
  Sex: Female

DRUGS (2)
  1. LIORESAL [Suspect]
     Active Substance: BACLOFEN
     Indication: MUSCLE SPASTICITY
     Dosage: 560.1 MCG/DAY
  2. LIORESAL [Suspect]
     Active Substance: BACLOFEN
     Dosage: 560.1 MCG/DAY

REACTIONS (5)
  - Respiratory rate decreased [None]
  - Muscle spasticity [None]
  - Implant site extravasation [None]
  - Incorrect route of drug administration [None]
  - No therapeutic response [None]
